FAERS Safety Report 4815088-3 (Version None)
Quarter: 2005Q4

REPORT INFORMATION
  Report Type: 
  Country: None (occurrence: None)
  Receive Date: 20051028
  Receipt Date: 20051019
  Transmission Date: 20060501
  Serious: Yes (Hospitalization)
  Sender: FDA-Public Use
  Company Number: FR-ABBOTT-05P-056-0314661-00

PATIENT
  Weight: 2.74 kg

DRUGS (4)
  1. DEPAKENE [Suspect]
     Indication: DRUG EXPOSURE DURING PREGNANCY
  2. DEPAKENE [Suspect]
  3. DEPAKENE [Suspect]
  4. ERGOCALCIFEROL [Concomitant]
     Indication: DRUG USE FOR UNKNOWN INDICATION
     Route: 048
     Dates: start: 20050501, end: 20050525

REACTIONS (4)
  - DRUG EXPOSURE VIA BREAST MILK [None]
  - HYPERCALCAEMIA [None]
  - HYPOTONIA [None]
  - VOMITING [None]
